FAERS Safety Report 6833333-X (Version None)
Quarter: 2010Q3

REPORT INFORMATION
  Report Type: 
  Country: None (occurrence: None)
  Receive Date: 20100712
  Receipt Date: 20100701
  Transmission Date: 20110219
  Serious: Yes (Disabling, Other)
  Sender: FDA-Public Use
  Company Number: PHHY2010FR43875

PATIENT
  Sex: Male

DRUGS (1)
  1. CERTICAN [Suspect]
     Dosage: UNK
     Dates: start: 20020101

REACTIONS (1)
  - EYELID OEDEMA [None]
